FAERS Safety Report 4726168-5 (Version None)
Quarter: 2005Q3

REPORT INFORMATION
  Report Type: 
  Country: None (occurrence: None)
  Receive Date: 20050725
  Receipt Date: 20050711
  Transmission Date: 20060218
  Serious: Yes (Hospitalization)
  Sender: FDA-Public Use
  Company Number: 2005064842

PATIENT
  Age: 51 Year
  Sex: Female

DRUGS (2)
  1. SUDAFED 12 HOUR [Suspect]
     Indication: NASAL CONGESTION
     Dosage: 1 TABLET TWICE, ORAL
     Route: 048
     Dates: start: 20050331, end: 20050401
  2. TRISEKVENS (ESTRADIOL, ESTRIOL, NORETHISTERONE ACETATE) [Concomitant]

REACTIONS (4)
  - BLOOD GLUCOSE INCREASED [None]
  - DIZZINESS [None]
  - FEELING ABNORMAL [None]
  - TRANSIENT ISCHAEMIC ATTACK [None]
